FAERS Safety Report 8227355-4 (Version None)
Quarter: 2012Q1

REPORT INFORMATION
  Report Type: 
  Country: None (occurrence: None)
  Receive Date: 20120322
  Receipt Date: 20120316
  Transmission Date: 20120608
  Serious: Yes (Other)
  Sender: FDA-Public Use
  Company Number: US-BAYER-2011-112126

PATIENT
  Age: 30 Year
  Sex: Female

DRUGS (15)
  1. METOPROLOL SUCCINATE [Concomitant]
  2. WARFARIN SODIUM [Concomitant]
  3. ZEMPLAR [Concomitant]
  4. YAZ [Suspect]
     Indication: PREMENSTRUAL SYNDROME
     Dosage: UNK
     Dates: start: 20050101, end: 20060101
  5. OMEPRAZOLE [Concomitant]
  6. ASPIRIN [Concomitant]
  7. LISINOPRIL [Concomitant]
  8. ONDANSETRON HCL [Concomitant]
  9. LANTUS [Concomitant]
     Indication: DIABETES MELLITUS
  10. NEXIUM [Concomitant]
  11. CADUET [Concomitant]
  12. MAGNESIUM OXIDE [Concomitant]
  13. REGLAN [Concomitant]
  14. HUMALOG [Concomitant]
     Indication: DIABETES MELLITUS
  15. TORSEMIDE [Concomitant]

REACTIONS (10)
  - INJURY [None]
  - CHOLECYSTITIS [None]
  - RENAL FAILURE [None]
  - GALLBLADDER INJURY [None]
  - PAIN [None]
  - ANHEDONIA [None]
  - THROMBOSIS [None]
  - GENERAL PHYSICAL HEALTH DETERIORATION [None]
  - ANXIETY [None]
  - EMOTIONAL DISTRESS [None]
